FAERS Safety Report 5345117-2 (Version None)
Quarter: 2007Q2

REPORT INFORMATION
  Report Type: 
  Country: None (occurrence: None)
  Receive Date: 20070601
  Receipt Date: 20070523
  Transmission Date: 20071010
  Serious: Yes (Hospitalization, Other)
  Sender: FDA-Public Use
  Company Number: 163-21880-06120726

PATIENT
  Age: 73 Year
  Sex: Male

DRUGS (6)
  1. REVLIMID [Suspect]
     Indication: MYELODYSPLASTIC SYNDROME
     Dosage: 5 MG, 1 IN 1D, ORAL
     Route: 048
     Dates: start: 20060901, end: 20061004
  2. DIOVAN HCT(CO-DIOVAN) [Concomitant]
  3. TOPROL-XL [Concomitant]
  4. GLIMEPIRIDE [Concomitant]
  5. NEXIUM [Concomitant]
  6. EXJADE [Concomitant]

REACTIONS (8)
  - CHOLECYSTITIS [None]
  - CHOLECYSTITIS INFECTIVE [None]
  - FAT EMBOLISM [None]
  - GENERAL PHYSICAL HEALTH DETERIORATION [None]
  - PNEUMONIA ASPIRATION [None]
  - RENAL FAILURE ACUTE [None]
  - RESPIRATORY FAILURE [None]
  - SEPSIS [None]
